FAERS Safety Report 4422190-7 (Version None)
Quarter: 2004Q3

REPORT INFORMATION
  Report Type: 
  Country: None (occurrence: None)
  Receive Date: 20040810
  Receipt Date: 20021010
  Transmission Date: 20050211
  Serious: Yes (Hospitalization)
  Sender: FDA-Public Use
  Company Number: US-ROCHE-323164

PATIENT
  Age: 78 Year
  Sex: Male
  Weight: 88.5 kg

DRUGS (8)
  1. CAPECITABINE [Suspect]
     Dosage: 500 MG AM AND 1000 MG PM.
     Route: 048
     Dates: start: 20020909, end: 20021016
  2. IRINOTECAN [Suspect]
     Dosage: ON DAYS 1, 8, 15, 22 OF A 6 WEEK CYCLE.
     Route: 042
     Dates: start: 20020909, end: 20021028
  3. ZOCOR [Concomitant]
     Dates: start: 19960615
  4. COUMADIN [Concomitant]
     Dates: start: 19990615
  5. BETAPACE [Concomitant]
     Dates: start: 20021101
  6. PRILOSEC [Concomitant]
     Dates: start: 19930615
  7. IMDUR [Concomitant]
     Dates: start: 19970615
  8. IMODIUM [Concomitant]
     Dates: start: 20020909

REACTIONS (3)
  - ATRIAL FIBRILLATION [None]
  - INTESTINAL OBSTRUCTION [None]
  - SMALL INTESTINAL OBSTRUCTION [None]
